FAERS Safety Report 12214426 (Version 2)
Quarter: 2016Q3

REPORT INFORMATION
  Report Type: Report from Study
  Country: US (occurrence: US)
  Receive Date: 20160328
  Receipt Date: 20160721
  Transmission Date: 20161109
  Serious: Yes (Disabling)
  Sender: FDA-Public Use
  Company Number: PHHO2016US004312

PATIENT

DRUGS (1)
  1. AFINITOR [Suspect]
     Active Substance: EVEROLIMUS
     Indication: GLIOMA
     Dosage: UNK
     Route: 048
     Dates: start: 20160209

REACTIONS (2)
  - Hypoacusis [Recovered/Resolved with Sequelae]
  - Deafness [Recovered/Resolved with Sequelae]

NARRATIVE: CASE EVENT DATE: 20160217
